FAERS Safety Report 16810981 (Version 1)
Quarter: 2019Q3

REPORT INFORMATION
  Report Type: Report from Study
  Country: US (occurrence: US)
  Receive Date: 20190916
  Receipt Date: 20190916
  Transmission Date: 20191005
  Serious: Yes (Hospitalization, Other)
  Sender: FDA-Public Use
  Company Number: US-ROCHE-2406179

PATIENT
  Age: 64 Year
  Sex: Female
  Weight: 90.8 kg

DRUGS (10)
  1. OCREVUS [Suspect]
     Active Substance: OCRELIZUMAB
     Route: 042
  2. BACLOFEN. [Concomitant]
     Active Substance: BACLOFEN
     Indication: MUSCLE SPASTICITY
     Dosage: UP TO 3 A DAY
     Route: 065
  3. MODAFINIL. [Concomitant]
     Active Substance: MODAFINIL
     Route: 065
  4. SERTRALINE [Concomitant]
     Active Substance: SERTRALINE HYDROCHLORIDE
     Indication: ANXIETY
     Route: 065
  5. OCREVUS [Suspect]
     Active Substance: OCRELIZUMAB
     Route: 042
     Dates: start: 20180907
  6. RELAFEN [Concomitant]
     Active Substance: NABUMETONE
     Indication: BACK PAIN
     Dosage: AS NEEDED FOR BACK PAIN/MUSCLE SPASMS
     Route: 065
  7. OCREVUS [Suspect]
     Active Substance: OCRELIZUMAB
     Indication: PRIMARY PROGRESSIVE MULTIPLE SCLEROSIS
     Route: 042
     Dates: start: 2017
  8. LEVOTHYROXINE. [Concomitant]
     Active Substance: LEVOTHYROXINE
     Dosage: DOSE: 100 MCG
     Route: 065
  9. RELAFEN [Concomitant]
     Active Substance: NABUMETONE
     Indication: MUSCLE SPASMS
  10. OCREVUS [Suspect]
     Active Substance: OCRELIZUMAB
     Dosage: MOST RECENT INFUSION
     Route: 042
     Dates: start: 20190401

REACTIONS (3)
  - Ear infection [Recovered/Resolved]
  - Bronchitis [Recovered/Resolved]
  - Fatigue [Unknown]

NARRATIVE: CASE EVENT DATE: 201903
